FAERS Safety Report 18262380 (Version 1)
Quarter: 2020Q3

REPORT INFORMATION
  Report Type: Spontaneous
  Country: US (occurrence: US)
  Receive Date: 20200911
  Receipt Date: 20200911
  Transmission Date: 20201103
  Serious: Yes (Hospitalization)
  Sender: FDA-Public Use
  Company Number: None

PATIENT
  Age: 55 Year
  Sex: Female

DRUGS (11)
  1. CYCLOBENZAPR [Concomitant]
     Active Substance: CYCLOBENZAPRINE
  2. METOPROLOL. [Concomitant]
     Active Substance: METOPROLOL
  3. RESTASIS [Concomitant]
     Active Substance: CYCLOSPORINE
  4. HYDROCHLOROT [Concomitant]
     Active Substance: HYDROCHLOROTHIAZIDE
  5. AZATHIOPRINE. [Concomitant]
     Active Substance: AZATHIOPRINE
  6. ERYHROMYCINION [Concomitant]
  7. METOPROL SUC ER [Concomitant]
  8. PANTOPRAZOLE [Concomitant]
     Active Substance: PANTOPRAZOLE
  9. HUMIRA [Suspect]
     Active Substance: ADALIMUMAB
     Indication: RHEUMATOID ARTHRITIS
     Dosage: ?          OTHER DOSE:1 PEN;?
     Route: 058
     Dates: start: 20190116
  10. FLUOXETINE [Concomitant]
     Active Substance: FLUOXETINE HYDROCHLORIDE
  11. GABAPENTIN. [Concomitant]
     Active Substance: GABAPENTIN

REACTIONS (2)
  - Surgery [None]
  - Product dose omission issue [None]

NARRATIVE: CASE EVENT DATE: 20200911
